FAERS Safety Report 5751202-3 (Version None)
Quarter: 2008Q2

REPORT INFORMATION
  Report Type: 
  Country: None (occurrence: None)
  Receive Date: 20080528
  Receipt Date: 20071127
  Transmission Date: 20081010
  Serious: Yes (Hospitalization, Disabling)
  Sender: FDA-Public Use
  Company Number: US-BOEHRINGER INGELHEIM GMBH, GERMANY-2006-BP-14970BP

PATIENT
  Sex: Female
  Weight: 58 kg

DRUGS (26)
  1. MIRAPEX [Suspect]
     Indication: PARKINSON'S DISEASE
     Route: 048
     Dates: start: 19970801, end: 20010801
  2. PRILOSEC [Concomitant]
  3. MECLIZINE [Concomitant]
  4. SINEMET [Concomitant]
     Indication: PARKINSON'S DISEASE
  5. REQUIP [Concomitant]
     Indication: PARKINSON'S DISEASE
     Dates: start: 20010925
  6. AMANTADINE HCL [Concomitant]
     Indication: PARKINSON'S DISEASE
  7. LUVOX [Concomitant]
  8. ZOLOFT [Concomitant]
  9. STALEVO 100 [Concomitant]
  10. HYDROCODONE BITARTRATE [Concomitant]
     Indication: NERVE INJURY
  11. NEURONTIN [Concomitant]
  12. KLONOPIN [Concomitant]
     Indication: ANXIETY
  13. VICODIN [Concomitant]
  14. NORTRYPTALINE [Concomitant]
  15. OXYCODONE HCL [Concomitant]
     Indication: PAIN
  16. XANAX [Concomitant]
  17. BEXTRA [Concomitant]
  18. FLEXERIL [Concomitant]
  19. LEXAPRO [Concomitant]
     Indication: DEPRESSION
  20. LEXAPRO [Concomitant]
     Indication: SUICIDE ATTEMPT
  21. TRAZODONE HCL [Concomitant]
  22. TOPROL-XL [Concomitant]
     Indication: ATRIAL FIBRILLATION
  23. ULTRAM [Concomitant]
  24. OXYCONTIN [Concomitant]
  25. SURMONTIL [Concomitant]
  26. PREMARIN [Concomitant]
     Indication: OESTROGEN REPLACEMENT THERAPY

REACTIONS (11)
  - ANXIETY [None]
  - DEPRESSION [None]
  - EMOTIONAL DISTRESS [None]
  - FEAR [None]
  - INJURY [None]
  - INTENTIONAL OVERDOSE [None]
  - NERVE INJURY [None]
  - OBSESSIVE-COMPULSIVE DISORDER [None]
  - PAIN [None]
  - PATHOLOGICAL GAMBLING [None]
  - SUICIDE ATTEMPT [None]
